FAERS Safety Report 6565940-6 (Version None)
Quarter: 2010Q1

REPORT INFORMATION
  Report Type: 
  Country: None (occurrence: None)
  Receive Date: 20100129
  Receipt Date: 20100129
  Transmission Date: 20100710
  Serious: No
  Sender: FDA-Public Use
  Company Number: None

PATIENT
  Age: 58 Year
  Sex: Male
  Weight: 102.0593 kg

DRUGS (1)
  1. AVELOX [Suspect]
     Indication: OSTEOMYELITIS
     Dosage: 400MG DAILY
     Dates: start: 20090128, end: 20090818

REACTIONS (2)
  - MYALGIA [None]
  - TENDON PAIN [None]
